FAERS Safety Report 21613105 (Version 1)
Quarter: 2022Q4

REPORT INFORMATION
  Report Type: Spontaneous
  Country: US (occurrence: US)
  Receive Date: 20221118
  Receipt Date: 20221118
  Transmission Date: 20230112
  Serious: Yes (Other)
  Sender: FDA-Public Use
  Company Number: US-002147023-NVSC2022US256577

PATIENT
  Sex: Female

DRUGS (2)
  1. CARBOPLATIN [Suspect]
     Active Substance: CARBOPLATIN
     Indication: Optic glioma
     Dosage: UNK
     Route: 065
  2. VINBLASTINE [Suspect]
     Active Substance: VINBLASTINE
     Indication: Product used for unknown indication
     Dosage: UNK
     Route: 065

REACTIONS (8)
  - Optic glioma [Unknown]
  - Malignant neoplasm progression [Unknown]
  - Blindness [Unknown]
  - Exophthalmos [Unknown]
  - Disease progression [Unknown]
  - Drug intolerance [Unknown]
  - Hypersensitivity [Unknown]
  - Product use in unapproved indication [Unknown]
